FAERS Safety Report 10143956 (Version 1)
Quarter: 2014Q2

REPORT INFORMATION
  Report Type: Spontaneous
  Country: CN (occurrence: CN)
  Receive Date: 20140430
  Receipt Date: 20140430
  Transmission Date: 20141212
  Serious: Yes (Hospitalization)
  Sender: FDA-Public Use
  Company Number: CN-009507513-1404CHN014126

PATIENT
  Age: 77 Year
  Sex: 0

DRUGS (1)
  1. TIENAM [Suspect]
     Indication: INFECTION
     Dosage: 0.5 G, TID
     Route: 041
     Dates: start: 20131127, end: 20131129

REACTIONS (1)
  - Fungal infection [Recovering/Resolving]
